FAERS Safety Report 25249344 (Version 2)
Quarter: 2025Q2

REPORT INFORMATION
  Report Type: Spontaneous
  Country: PK (occurrence: PK)
  Receive Date: 20250429
  Receipt Date: 20250604
  Transmission Date: 20250717
  Serious: Yes (Hospitalization, Other)
  Sender: AZURITY PHARMACEUTICALS
  Company Number: PK-AZURITY PHARMACEUTICALS, INC.-AZR202504-001109

PATIENT
  Age: 34 Year
  Sex: Male

DRUGS (2)
  1. AMPHETAMINE SULFATE [Suspect]
     Active Substance: AMPHETAMINE SULFATE
     Indication: Product used for unknown indication
     Dosage: UNK, DAILY (FOR THE LAST FIVE YEARS)
     Route: 065
  2. AMPHETAMINE SULFATE [Suspect]
     Active Substance: AMPHETAMINE SULFATE
     Route: 065

REACTIONS (8)
  - Homicide [Unknown]
  - Disorientation [Unknown]
  - Suicide attempt [Recovered/Resolved]
  - Substance-induced psychotic disorder [Recovered/Resolved]
  - Drug dependence [Unknown]
  - Drug abuse [Unknown]
  - Hypertension [Unknown]
  - Tachycardia [Unknown]
